FAERS Safety Report 23794354 (Version 1)
Quarter: 2024Q2

REPORT INFORMATION
  Report Type: Spontaneous
  Country: US (occurrence: None)
  Receive Date: 20240426
  Receipt Date: 20240426
  Transmission Date: 20240716
  Serious: No
  Sender: FDA-Public Use
  Company Number: None

PATIENT
  Sex: Female

DRUGS (1)
  1. PROLIA [Suspect]
     Active Substance: DENOSUMAB
     Indication: Osteoporosis
     Dosage: 60MG EVERY 6 HOURS UNDER THE SKIN?
     Route: 058
     Dates: start: 202310

REACTIONS (3)
  - Chest pain [None]
  - Middle insomnia [None]
  - Dyspepsia [None]
